FAERS Safety Report 18584201 (Version 1)
Quarter: 2020Q4

REPORT INFORMATION
  Report Type: Other
  Country: CN (occurrence: CN)
  Receive Date: 20201207
  Receipt Date: 20201207
  Transmission Date: 20210114
  Serious: Yes (Death, Other)
  Sender: FDA-Public Use
  Company Number: CN-ROCHE-2724533

PATIENT

DRUGS (14)
  1. ANTITHYMOCYTE IMMUNOGLOBULIN (RABBIT) [Suspect]
     Active Substance: LAPINE T-LYMPHOCYTE IMMUNE GLOBULIN
     Indication: PROPHYLAXIS AGAINST GRAFT VERSUS HOST DISEASE
     Route: 065
  2. MELPHALAN. [Concomitant]
     Active Substance: MELPHALAN
  3. METHOTREXATE. [Suspect]
     Active Substance: METHOTREXATE
     Indication: PROPHYLAXIS AGAINST GRAFT VERSUS HOST DISEASE
     Dosage: 1 DAYS
     Route: 065
  4. ETOPOSIDE. [Concomitant]
     Active Substance: ETOPOSIDE
  5. FLUDARABINE [Concomitant]
     Active Substance: FLUDARABINE PHOSPHATE
  6. MESNA. [Concomitant]
     Active Substance: MESNA
  7. MYCOPHENOLATE MOFETIL. [Suspect]
     Active Substance: MYCOPHENOLATE MOFETIL
     Indication: PROPHYLAXIS AGAINST GRAFT VERSUS HOST DISEASE
     Route: 065
  8. CYCLOSPORIN A [Suspect]
     Active Substance: CYCLOSPORINE
     Indication: PROPHYLAXIS AGAINST GRAFT VERSUS HOST DISEASE
     Dosage: STARTING AT -10 DAYS
     Route: 041
  9. CYTARABINE. [Concomitant]
     Active Substance: CYTARABINE
  10. BUSULFAN. [Concomitant]
     Active Substance: BUSULFAN
  11. CYCLOPHOSPHAMIDE. [Concomitant]
     Active Substance: CYCLOPHOSPHAMIDE
  12. ALPROSTADIL. [Concomitant]
     Active Substance: ALPROSTADIL
     Route: 041
  13. METHOTREXATE. [Suspect]
     Active Substance: METHOTREXATE
     Dosage: +3 DAYS, +6 DAYS, +11 DAYS.
     Route: 065
  14. BASILIXIMAB [Suspect]
     Active Substance: BASILIXIMAB
     Indication: PROPHYLAXIS AGAINST GRAFT VERSUS HOST DISEASE
     Dosage: +1 DAYS, +4 DAYS.
     Route: 065

REACTIONS (5)
  - Infection [Fatal]
  - Cytomegalovirus viraemia [Unknown]
  - Intentional product use issue [Unknown]
  - Epstein-Barr viraemia [Unknown]
  - Off label use [Unknown]
